FAERS Safety Report 25103958 (Version 2)
Quarter: 2025Q2

REPORT INFORMATION
  Report Type: Spontaneous
  Country: US (occurrence: US)
  Receive Date: 20250321
  Receipt Date: 20250418
  Transmission Date: 20250716
  Serious: No
  Sender: NOVARTIS
  Company Number: US-002147023-NVSC2025US047833

PATIENT
  Sex: Male

DRUGS (2)
  1. TAFINLAR [Suspect]
     Active Substance: DABRAFENIB MESYLATE
     Indication: Colon cancer
     Dosage: 150 MG, Q12H
     Route: 048
     Dates: start: 202503
  2. MEKINIST [Suspect]
     Active Substance: TRAMETINIB DIMETHYL SULFOXIDE
     Indication: Colon cancer
     Dosage: 2 MG, QD
     Route: 048
     Dates: start: 202503

REACTIONS (4)
  - Hypoaesthesia [Unknown]
  - Discomfort [Unknown]
  - Injection site pain [Unknown]
  - Injection site mass [Unknown]
